FAERS Safety Report 15880315 (Version 1)
Quarter: 2019Q1

REPORT INFORMATION
  Report Type: Spontaneous
  Country: US (occurrence: US)
  Receive Date: 20190103
  Receipt Date: 20190103
  Transmission Date: 20190417
  Serious: Yes (Disabling)
  Sender: FDA-Public Use
  Company Number: None

PATIENT
  Age: 63 Year
  Sex: Female
  Weight: 74.84 kg

DRUGS (15)
  1. DHEA [Concomitant]
     Active Substance: PRASTERONE
  2. LTHYRONINE: SR. [Concomitant]
  3. WELLBULRIN [Concomitant]
  4. BIESL [Concomitant]
  5. BORON [Concomitant]
     Active Substance: BORON
  6. HNMULIN R [Concomitant]
  7. FELDANE [Concomitant]
  8. PROGESTERONE. [Concomitant]
     Active Substance: PROGESTERONE
  9. SERINE. [Concomitant]
     Active Substance: SERINE
  10. TRULICITY [Suspect]
     Active Substance: DULAGLUTIDE
     Dosage: ?          OTHER STRENGTH:1.5MG/0.5ML;QUANTITY:1 PEN;OTHER ROUTE:INJECTION?
     Dates: start: 20171101, end: 20181101
  11. BENICAR [Concomitant]
     Active Substance: OLMESARTAN MEDOXOMIL
  12. CURDIZEM [Concomitant]
  13. TRESCEBA [Concomitant]
  14. MAGNESIUM [Concomitant]
     Active Substance: MAGNESIUM
  15. BIOTIN [Concomitant]
     Active Substance: BIOTIN

REACTIONS (4)
  - Alopecia [None]
  - Dry mouth [None]
  - Plicated tongue [None]
  - Trichorrhexis [None]

NARRATIVE: CASE EVENT DATE: 20180101
